FAERS Safety Report 11043798 (Version 1)
Quarter: 2015Q2

REPORT INFORMATION
  Report Type: Spontaneous
  Country: CA (occurrence: CA)
  Receive Date: 20150417
  Receipt Date: 20150417
  Transmission Date: 20150821
  Serious: Yes (Hospitalization)
  Sender: FDA-Public Use
  Company Number: CA-TEVA-554964ACC

PATIENT
  Age: 33 Year
  Sex: Male
  Weight: 71 kg

DRUGS (1)
  1. TEVA-OLANZAPINE OD [Suspect]
     Active Substance: OLANZAPINE
     Indication: SCHIZOPHRENIA
     Dosage: 20 MILLIGRAM DAILY;
     Route: 060

REACTIONS (6)
  - Treatment noncompliance [Unknown]
  - Drug ineffective [Unknown]
  - Product quality issue [Unknown]
  - Product solubility abnormal [Unknown]
  - Suicidal ideation [Unknown]
  - Condition aggravated [Unknown]
